FAERS Safety Report 5515166-X (Version None)
Quarter: 2007Q4

REPORT INFORMATION
  Report Type: 
  Country: None (occurrence: None)
  Receive Date: 20071113
  Receipt Date: 20070126
  Transmission Date: 20080405
  Serious: No
  Sender: FDA-Public Use
  Company Number: A0637189A

PATIENT
  Age: 72 Year
  Sex: Female

DRUGS (6)
  1. COREG [Suspect]
     Dosage: 25MG PER DAY
     Route: 048
  2. RELAFEN [Suspect]
     Indication: RHEUMATOID ARTHRITIS
     Dosage: 1500MG PER DAY
     Route: 048
     Dates: end: 20061101
  3. PRAVACHOL [Concomitant]
  4. ALTACE [Concomitant]
  5. COREG [Concomitant]
  6. ASPIRIN [Concomitant]

REACTIONS (1)
  - RENAL DISORDER [None]
